FAERS Safety Report 9396772 (Version 3)
Quarter: 2013Q4

REPORT INFORMATION
  Report Type: Report from Study
  Country: BR (occurrence: BR)
  Receive Date: 20130712
  Receipt Date: 20131025
  Transmission Date: 20140711
  Serious: Yes (Other)
  Sender: FDA-Public Use
  Company Number: BR-ROCHE-1246455

PATIENT
  Sex: Female
  Weight: 80 kg

DRUGS (5)
  1. XOLAIR [Suspect]
     Indication: ASTHMA
     Dosage: 2 AMPOULES; USED 6 DOSES
     Route: 058
  2. LOSARTAN [Concomitant]
  3. MODURETIC [Concomitant]
  4. SERETIDE [Concomitant]
  5. METFORMIN [Concomitant]

REACTIONS (2)
  - Lung disorder [Not Recovered/Not Resolved]
  - Drug effect decreased [Unknown]
